FAERS Safety Report 9967440 (Version 1)
Quarter: 2014Q1

REPORT INFORMATION
  Report Type: Report from Study
  Country: US (occurrence: US)
  Receive Date: 20140305
  Receipt Date: 20140305
  Transmission Date: 20141002
  Serious: No
  Sender: FDA-Public Use
  Company Number: US-ABBVIE-13P-163-1137360-00

PATIENT
  Age: 47 Year
  Sex: Male

DRUGS (1)
  1. HUMIRA [Suspect]
     Indication: CROHN^S DISEASE
     Route: 058
     Dates: start: 20130417, end: 20130821

REACTIONS (5)
  - Fatigue [Unknown]
  - Asthenia [Unknown]
  - Muscle tightness [Unknown]
  - Myalgia [Unknown]
  - Injection site rash [Unknown]
